FAERS Safety Report 21146137 (Version 1)
Quarter: 2022Q3

REPORT INFORMATION
  Report Type: Spontaneous
  Country: MX (occurrence: None)
  Receive Date: 20220729
  Receipt Date: 20220729
  Transmission Date: 20221027
  Serious: Yes (Other)
  Sender: FDA-Public Use
  Company Number: MX-ROCHE-3149373

PATIENT
  Sex: Female

DRUGS (5)
  1. RITUXIMAB [Suspect]
     Active Substance: RITUXIMAB
     Indication: Systemic scleroderma
     Dosage: LAST APPLICATION WAS IN APR/2022
     Route: 042
  2. AZATHIOPRINE [Concomitant]
     Active Substance: AZATHIOPRINE
     Dosage: DOSE AND FREQUENCY WERE NOT REPORTED
     Route: 065
  3. LEFLUNOMIDE [Concomitant]
     Active Substance: LEFLUNOMIDE
  4. ACEMETACIN [Concomitant]
     Active Substance: ACEMETACIN
  5. ACETAMINOPHEN [Concomitant]
     Active Substance: ACETAMINOPHEN

REACTIONS (8)
  - Off label use [Unknown]
  - Hepatic enzyme increased [Unknown]
  - Liver injury [Unknown]
  - Pain [Unknown]
  - Skin discolouration [Unknown]
  - Chills [Unknown]
  - Hyperhidrosis [Unknown]
  - Systemic scleroderma [Unknown]
